FAERS Safety Report 17213476 (Version 1)
Quarter: 2019Q4

REPORT INFORMATION
  Report Type: Spontaneous
  Country: US (occurrence: US)
  Receive Date: 20191205
  Receipt Date: 20191205
  Transmission Date: 20200122
  Serious: Yes (Other)
  Sender: FDA-Public Use
  Company Number: None

PATIENT
  Age: 79 Year
  Sex: Male
  Weight: 78.47 kg

DRUGS (11)
  1. CARVEDILOL. [Concomitant]
     Active Substance: CARVEDILOL
  2. IRON [Concomitant]
     Active Substance: IRON
  3. FINASTERIDE. [Concomitant]
     Active Substance: FINASTERIDE
  4. RANITIDINE. [Suspect]
     Active Substance: RANITIDINE
     Indication: ULCER
     Dosage: ?          QUANTITY:150 MG MILLIGRAM(S);?
     Route: 048
     Dates: start: 20180302, end: 20190903
  5. VITAMIN C [Concomitant]
     Active Substance: ASCORBIC ACID
  6. FAMOTIDINE. [Concomitant]
     Active Substance: FAMOTIDINE
  7. FLIMEPIRIDE [Concomitant]
  8. ALFUZOSIN [Concomitant]
     Active Substance: ALFUZOSIN
  9. PRAVASTATIN. [Concomitant]
     Active Substance: PRAVASTATIN
  10. FUROSEMIDE. [Concomitant]
     Active Substance: FUROSEMIDE
  11. ALLOPURINOL. [Concomitant]
     Active Substance: ALLOPURINOL

REACTIONS (1)
  - Salivary gland cancer [None]

NARRATIVE: CASE EVENT DATE: 201902
